FAERS Safety Report 14531719 (Version 3)
Quarter: 2018Q2

REPORT INFORMATION
  Report Type: Report from Study
  Country: FR (occurrence: FR)
  Receive Date: 20180214
  Receipt Date: 20180507
  Transmission Date: 20180711
  Serious: Yes (Life-Threatening, Other)
  Sender: FDA-Public Use
  Company Number: FR-PFIZER INC-2018063007

PATIENT
  Age: 15 Year
  Sex: Male

DRUGS (18)
  1. VINCRISTINE SULFATE. [Interacting]
     Active Substance: VINCRISTINE SULFATE
     Dosage: 2 UNK, UNK
     Route: 042
     Dates: start: 20171226
  2. CYTARABINE. [Interacting]
     Active Substance: CYTARABINE
     Indication: ACUTE LYMPHOCYTIC LEUKAEMIA
     Dosage: 30 MG, 1X/DAY
     Route: 037
     Dates: start: 20171214
  3. DOXORUBICIN HCL [Interacting]
     Active Substance: DOXORUBICIN HYDROCHLORIDE
     Indication: ACUTE LYMPHOCYTIC LEUKAEMIA
     Dosage: 45.3 MG, 1X/DAY
     Route: 042
     Dates: start: 20171211
  4. DAUNORUBICIN [Interacting]
     Active Substance: DAUNORUBICIN
     Indication: ACUTE LYMPHOCYTIC LEUKAEMIA
     Dosage: 45.3 MG, 1X/DAY
     Route: 042
     Dates: start: 20171211
  5. DOXORUBICIN HCL [Interacting]
     Active Substance: DOXORUBICIN HYDROCHLORIDE
     Dosage: 46.3 MG, 1X/DAY:QD
     Route: 042
     Dates: start: 20171211
  6. VINCRISTINE SULFATE. [Interacting]
     Active Substance: VINCRISTINE SULFATE
     Dosage: 2 UNK, UNK
     Route: 042
     Dates: start: 20171211
  7. DAUNORUBICIN [Interacting]
     Active Substance: DAUNORUBICIN
     Dosage: 46.5 MG, UNK
     Route: 042
     Dates: start: 20171218, end: 20171226
  8. HYDROCORTISONE. [Interacting]
     Active Substance: HYDROCORTISONE
     Indication: ACUTE LYMPHOCYTIC LEUKAEMIA
     Dosage: 15 MG, 1X/DAY
     Route: 037
     Dates: start: 20171214
  9. PEGASPARGASE [Interacting]
     Active Substance: PEGASPARGASE
     Indication: ACUTE LYMPHOCYTIC LEUKAEMIA
     Dosage: 1940 IU, 1X/DAY
     Route: 042
     Dates: start: 20171214
  10. SULFAMETHOXAZOLE AND TRIMETHOPRIM [Concomitant]
     Active Substance: SULFAMETHOXAZOLE\TRIMETHOPRIM
     Indication: ANTIFUNGAL PROPHYLAXIS
     Dosage: UNK
  11. DEXAMETHASONE. [Interacting]
     Active Substance: DEXAMETHASONE
     Indication: ACUTE LYMPHOCYTIC LEUKAEMIA
     Dosage: 15.5 MG, 1X/DAY
     Route: 048
     Dates: start: 20171211, end: 20171217
  12. FENOFIBRATE. [Concomitant]
     Active Substance: FENOFIBRATE
     Indication: HYPERTRIGLYCERIDAEMIA
     Dosage: UNK
  13. OMEGA 3 /01334101/ [Concomitant]
     Active Substance: OMEGA-3 FATTY ACIDS
     Indication: HYPERTRIGLYCERIDAEMIA
     Dosage: UNK
  14. DOXORUBICIN HCL [Interacting]
     Active Substance: DOXORUBICIN HYDROCHLORIDE
     Dosage: 46.5 MG, UNK
     Route: 042
     Dates: start: 20171226
  15. DEXAMETHASONE. [Interacting]
     Active Substance: DEXAMETHASONE
     Dosage: 15.5 MG, UNK
     Route: 048
     Dates: start: 20171226, end: 20180101
  16. METHOTREXATE SODIUM. [Interacting]
     Active Substance: METHOTREXATE SODIUM
     Indication: ACUTE LYMPHOCYTIC LEUKAEMIA
     Dosage: 15 MG, 1X/DAY
     Route: 037
     Dates: start: 20171214
  17. VINCRISTINE SULFATE. [Suspect]
     Active Substance: VINCRISTINE SULFATE
     Indication: ACUTE LYMPHOCYTIC LEUKAEMIA
     Dosage: 2 MG, UNK
     Route: 042
     Dates: start: 20171218, end: 20171226
  18. DOXORUBICIN HCL [Interacting]
     Active Substance: DOXORUBICIN HYDROCHLORIDE
     Dosage: 46.5 MG, UNK
     Route: 042
     Dates: start: 20171218

REACTIONS (2)
  - Potentiating drug interaction [Recovered/Resolved]
  - Cerebrovascular accident [Recovered/Resolved]

NARRATIVE: CASE EVENT DATE: 20180122
